FAERS Safety Report 4323735-8 (Version None)
Quarter: 2004Q1

REPORT INFORMATION
  Report Type: 
  Country: None (occurrence: None)
  Receive Date: 20040326
  Receipt Date: 20030806
  Transmission Date: 20041129
  Serious: Yes (Other)
  Sender: FDA-Public Use
  Company Number: US-BRISTOL-MYERS SQUIBB COMPANY-12348769

PATIENT
  Age: 64 Year
  Sex: Male
  Weight: 50 kg

DRUGS (5)
  1. BICNU [Suspect]
     Indication: BONE MARROW TRANSPLANT
     Route: 042
     Dates: start: 20030731, end: 20030731
  2. ETOPOSIDE [Concomitant]
     Dates: start: 20030802, end: 20030802
  3. SEPTRA [Concomitant]
  4. KYTRIL [Concomitant]
  5. PROSCAR [Concomitant]

REACTIONS (1)
  - RENAL FAILURE [None]
